FAERS Safety Report 4778475-8 (Version None)
Quarter: 2005Q3

REPORT INFORMATION
  Report Type: 
  Country: None (occurrence: None)
  Receive Date: 20050922
  Receipt Date: 20050913
  Transmission Date: 20060218
  Serious: Yes (Hospitalization, Other)
  Sender: FDA-Public Use
  Company Number: 2005127178

PATIENT
  Age: 56 Year
  Sex: Female
  Weight: 48.0813 kg

DRUGS (7)
  1. NEURONTIN [Suspect]
     Indication: CONVULSION
     Dates: start: 20020101, end: 20050101
  2. ELAVIL [Concomitant]
  3. ESTRACE [Concomitant]
  4. FLEXERIL [Concomitant]
  5. VICODIN HP (HYDROCODONE BITARTRATE, PARACETAMOL) [Concomitant]
  6. KLONOPIN [Concomitant]
  7. VIOXX [Concomitant]

REACTIONS (4)
  - CONVULSION [None]
  - EMPHYSEMA [None]
  - SKIN DISCOLOURATION [None]
  - TREATMENT NONCOMPLIANCE [None]
